FAERS Safety Report 8977893 (Version 1)
Quarter: 2012Q4

REPORT INFORMATION
  Report Type: 
  Country: NL (occurrence: NL)
  Receive Date: 20121220
  Receipt Date: 20121220
  Transmission Date: 20130627
  Serious: Yes (Death, Hospitalization)
  Sender: FDA-Public Use
  Company Number: NL-TEVA-375977ISR

PATIENT

DRUGS (1)
  1. LITHIUMCARBONATE [Suspect]

REACTIONS (2)
  - Loss of consciousness [Fatal]
  - Antipsychotic drug level above therapeutic [Fatal]
